FAERS Safety Report 8048885-4 (Version None)
Quarter: 2012Q1

REPORT INFORMATION
  Report Type: 
  Country: None (occurrence: None)
  Receive Date: 20120117
  Receipt Date: 20120112
  Transmission Date: 20120608
  Serious: Yes (Death)
  Sender: FDA-Public Use
  Company Number: US-ASTELLAS-2011US008274

PATIENT
  Sex: Male

DRUGS (16)
  1. PROGRAF [Suspect]
     Dosage: 1 MG, BID
     Route: 048
  2. BACTRIM DS [Concomitant]
     Indication: ANTIBIOTIC PROPHYLAXIS
  3. MYCOPHENOLATE MOFETIL (CELLCEPT) [Concomitant]
     Indication: HEART TRANSPLANT
     Dosage: 500 MG, BID
     Route: 048
  4. COREG [Concomitant]
     Indication: BLOOD PRESSURE
     Dosage: 50 MG, BID
     Route: 048
  5. KEPPRA [Concomitant]
     Indication: EPILEPSY
     Dosage: 1 G, BID
     Route: 048
  6. PLAVIX [Concomitant]
     Indication: THROMBOSIS PROPHYLAXIS
     Dosage: 75 MG, UID/QD
     Route: 048
  7. FUROSEMIDE [Concomitant]
     Indication: OEDEMA
     Dosage: 40 MG, UID/QD
     Route: 048
  8. NITROGLYCERIN [Concomitant]
     Indication: CHEST PAIN
     Dosage: 0.1 MG, UID/QD
     Route: 048
  9. ASPIRIN [Concomitant]
     Indication: THROMBOSIS PROPHYLAXIS
     Dosage: 81 MG, UID/QD
     Route: 048
  10. PROGRAF [Suspect]
     Indication: HEART TRANSPLANT
     Dosage: 2 MG IN THE MORNING, 1 MG IN THE EVENING
     Route: 048
     Dates: start: 20071210, end: 20110502
  11. SIMVASTATIN [Concomitant]
     Indication: BLOOD CHOLESTEROL
     Dosage: 20 MG, UID/QD
     Route: 048
  12. BACTRIM DS [Concomitant]
     Indication: BACTERIAL INFECTION
     Dosage: 400/80 MG, UID/QD
     Route: 048
  13. POTASSIUM CHLORIDE [Concomitant]
     Indication: ELECTROLYTE SUBSTITUTION THERAPY
     Dosage: 20 MEQ, UID/QD
     Route: 048
  14. NORCO [Concomitant]
     Indication: ANALGESIC THERAPY
     Dosage: 325/5 MG, PRN
     Route: 048
  15. MAG-OX [Concomitant]
     Indication: MEDICAL DIET
     Dosage: 400 MG, BID
     Route: 048
  16. LISINOPRIL [Concomitant]
     Indication: BLOOD PRESSURE
     Dosage: 20 MG, UID/QD
     Route: 048

REACTIONS (1)
  - DEATH [None]
